FAERS Safety Report 5877318-9 (Version None)
Quarter: 2008Q3

REPORT INFORMATION
  Report Type: 
  Country: None (occurrence: None)
  Receive Date: 20080910
  Receipt Date: 20080829
  Transmission Date: 20090109
  Serious: Yes (Other)
  Sender: FDA-Public Use
  Company Number: FR-AMGEN-UK282535

PATIENT
  Age: 71 Year
  Sex: Female
  Weight: 65 kg

DRUGS (9)
  1. MIMPARA [Suspect]
     Indication: HYPERPARATHYROIDISM SECONDARY
     Route: 048
     Dates: start: 20070509, end: 20080501
  2. CALCIUM [Concomitant]
     Route: 065
  3. KAYEXALATE [Concomitant]
     Route: 065
  4. FONZYLANE [Concomitant]
     Route: 065
  5. RAMIPRIL [Concomitant]
  6. PRAVASTATIN [Concomitant]
     Route: 065
  7. ASPIRIN [Concomitant]
     Route: 065
  8. KEPPRA [Concomitant]
     Route: 065
  9. XALATAN [Concomitant]

REACTIONS (3)
  - ARTHRALGIA [None]
  - MUSCLE SPASMS [None]
  - MYALGIA [None]
